FAERS Safety Report 20693515 (Version 1)
Quarter: 2022Q2

REPORT INFORMATION
  Report Type: Spontaneous
  Country: US (occurrence: US)
  Receive Date: 20220411
  Receipt Date: 20220411
  Transmission Date: 20220721
  Serious: No
  Sender: FDA-Public Use
  Company Number: US-BRISTOL-MYERS SQUIBB COMPANY-2022-015280

PATIENT
  Age: 70 Year
  Sex: Female
  Weight: 0 kg

DRUGS (1)
  1. LENALIDOMIDE [Suspect]
     Active Substance: LENALIDOMIDE
     Indication: Product used for unknown indication
     Dosage: FREQ-ONE CAPSULE DAILY, DAILY FOR 28 DAYS
     Route: 048
     Dates: start: 20150410

REACTIONS (1)
  - Cough [Unknown]
